FAERS Safety Report 4265974-0 (Version None)
Quarter: 2004Q1

REPORT INFORMATION
  Report Type: 
  Country: None (occurrence: None)
  Receive Date: 20040106
  Receipt Date: 20040101
  Transmission Date: 20041129
  Serious: Yes (Death, Other)
  Sender: FDA-Public Use
  Company Number: 2003189328IT

PATIENT
  Age: 56 Year
  Sex: Male

DRUGS (2)
  1. CAMPTOSAR [Suspect]
     Indication: GASTRIC CANCER
     Dosage: 200 MG, CYCLE 2, IV
     Route: 042
     Dates: start: 20031111, end: 20031111
  2. DOCETAXEL (DOCETAXEL) [Suspect]
     Indication: GASTRIC CANCER
     Dosage: 100 MG, CYCLE 2, IV
     Route: 042
     Dates: start: 20031111, end: 20031111

REACTIONS (8)
  - CARDIAC FAILURE [None]
  - DISSEMINATED INTRAVASCULAR COAGULATION [None]
  - GASTROINTESTINAL HAEMORRHAGE [None]
  - HYPOVOLAEMIC SHOCK [None]
  - HYPOXIA [None]
  - MYOCARDIAL INFARCTION [None]
  - NEUTROPENIA [None]
  - SEPSIS [None]
